FAERS Safety Report 9322742 (Version 6)
Quarter: 2014Q3

REPORT INFORMATION
  Report Type: Spontaneous
  Country: US (occurrence: US)
  Receive Date: 20130601
  Receipt Date: 20140911
  Transmission Date: 20150326
  Serious: Yes (Hospitalization, Disabling, Other)
  Sender: FDA-Public Use
  Company Number: US-ASTRAZENECA-2013SE38574

PATIENT
  Age: 55 Year
  Sex: Female
  Weight: 83.9 kg

DRUGS (30)
  1. NEXIUM [Suspect]
     Active Substance: ESOMEPRAZOLE MAGNESIUM
     Indication: ULCER
     Dosage: ONE TO TWO TIMES A DAY
     Route: 048
     Dates: start: 2000, end: 2001
  2. NEXIUM [Suspect]
     Active Substance: ESOMEPRAZOLE MAGNESIUM
     Indication: ULCER
     Dosage: ONE-TWO TIMES DAILY
     Route: 048
     Dates: end: 201308
  3. FOSAMAX [Suspect]
     Active Substance: ALENDRONATE SODIUM
     Route: 065
     Dates: start: 20090602
  4. ZANTAC [Concomitant]
     Active Substance: RANITIDINE HYDROCHLORIDE
  5. ADVAIR HFA [Concomitant]
     Active Substance: FLUTICASONE PROPIONATE\SALMETEROL XINAFOATE
     Indication: ASTHMA
     Dosage: 250/50
  6. GLUCOSAMINE CHONDROITIN [Concomitant]
     Active Substance: CHONDROITIN SULFATE (BOVINE)\GLUCOSAMINE HYDROCHLORIDE
     Dates: start: 20120515
  7. ACTONEL [Concomitant]
     Active Substance: RISEDRONATE SODIUM
     Route: 048
     Dates: start: 20031114
  8. FOSAMAX [Suspect]
     Active Substance: ALENDRONATE SODIUM
     Route: 065
  9. VICODIN [Concomitant]
     Active Substance: ACETAMINOPHEN\HYDROCODONE BITARTRATE
     Dosage: 7.6/750 ONE TABLET EVERY 6 HOURS, AS NEEDED
     Dates: start: 20120515
  10. NEXIUM [Suspect]
     Active Substance: ESOMEPRAZOLE MAGNESIUM
     Indication: GASTROOESOPHAGEAL REFLUX DISEASE
     Dosage: ONE TO TWO TIMES A DAY
     Route: 048
     Dates: start: 2000, end: 2001
  11. NEXIUM [Suspect]
     Active Substance: ESOMEPRAZOLE MAGNESIUM
     Indication: GASTROOESOPHAGEAL REFLUX DISEASE
     Route: 048
     Dates: start: 20090602
  12. PRILOSEC [Suspect]
     Active Substance: OMEPRAZOLE MAGNESIUM
     Route: 048
  13. TUMS [Concomitant]
     Active Substance: CALCIUM CARBONATE
     Dosage: AS NEEDED
  14. MULTIVITAMIN [Concomitant]
     Active Substance: VITAMINS
  15. BEXTRA [Concomitant]
     Active Substance: VALDECOXIB
     Route: 048
     Dates: start: 20031114
  16. NEXIUM [Suspect]
     Active Substance: ESOMEPRAZOLE MAGNESIUM
     Indication: GASTROOESOPHAGEAL REFLUX DISEASE
     Dosage: ONE-TWO TIMES DAILY
     Route: 048
     Dates: end: 201308
  17. LYRICA [Concomitant]
     Active Substance: PREGABALIN
     Dates: start: 20120515
  18. VITAMIN D [Concomitant]
     Active Substance: CHOLECALCIFEROL
     Dosage: BEFORE MEAL
     Route: 048
  19. VIOXX [Concomitant]
     Active Substance: ROFECOXIB
     Route: 048
     Dates: start: 20020313
  20. NEXIUM [Suspect]
     Active Substance: ESOMEPRAZOLE MAGNESIUM
     Indication: ULCER
     Route: 048
     Dates: start: 20090602
  21. BETAMETHASONE SODIUM PHOSPHATE [Concomitant]
     Active Substance: BETAMETHASONE SODIUM PHOSPHATE
  22. TAGAMET [Concomitant]
     Active Substance: CIMETIDINE
  23. LIPITOR [Concomitant]
     Active Substance: ATORVASTATIN CALCIUM
     Indication: BLOOD CHOLESTEROL INCREASED
  24. SINGULAIR [Concomitant]
     Active Substance: MONTELUKAST SODIUM
     Indication: ASTHMA
  25. CALCIUM + VITAMIN D [Concomitant]
     Active Substance: CALCIUM\VITAMIN D
  26. PRILOSEC [Suspect]
     Active Substance: OMEPRAZOLE MAGNESIUM
     Dosage: ONE CAPSULE BY MOUTH ONE TIME DAILY.
     Route: 048
     Dates: start: 20010616
  27. GAVISCON [Concomitant]
     Active Substance: ALUMINUM HYDROXIDE\MAGNESIUM CARBONATE
     Dosage: AS NEEDED
  28. MELOXICAM. [Concomitant]
     Active Substance: MELOXICAM
     Dates: start: 20120515
  29. NEXIUM [Suspect]
     Active Substance: ESOMEPRAZOLE MAGNESIUM
     Indication: GASTROOESOPHAGEAL REFLUX DISEASE
     Dosage: ONE CAPSULE TWO TIMES DAILY.
     Route: 048
     Dates: start: 20010725
  30. NEXIUM [Suspect]
     Active Substance: ESOMEPRAZOLE MAGNESIUM
     Indication: ULCER
     Dosage: ONE CAPSULE TWO TIMES DAILY.
     Route: 048
     Dates: start: 20010725

REACTIONS (21)
  - Femur fracture [Unknown]
  - Lumbar radiculopathy [Unknown]
  - Osteoporosis [Unknown]
  - Multiple fractures [Unknown]
  - Intervertebral disc protrusion [Unknown]
  - Pain [Unknown]
  - Tibia fracture [Unknown]
  - Scoliosis [Unknown]
  - Spondylolisthesis [Unknown]
  - Cervical radiculopathy [Unknown]
  - Arthritis [Unknown]
  - Arthropathy [Unknown]
  - Vitamin D deficiency [Unknown]
  - Cervical spinal stenosis [Unknown]
  - Spinal osteoarthritis [Unknown]
  - Gallbladder disorder [Unknown]
  - Depression [Unknown]
  - Bone disorder [Unknown]
  - Foot fracture [Unknown]
  - Impaired work ability [Unknown]
  - Osteopenia [Unknown]

NARRATIVE: CASE EVENT DATE: 200110
